FAERS Safety Report 8218837-X (Version None)
Quarter: 2012Q1

REPORT INFORMATION
  Report Type: 
  Country: None (occurrence: None)
  Receive Date: 20120319
  Receipt Date: 20120313
  Transmission Date: 20120608
  Serious: Yes (Hospitalization, Other)
  Sender: FDA-Public Use
  Company Number: PHHY2011JP05266

PATIENT
  Sex: Male

DRUGS (5)
  1. AFINITOR [Suspect]
     Dosage: 5 MG, DAILY
     Route: 048
     Dates: start: 20101203, end: 20110120
  2. AFINITOR [Suspect]
     Dosage: 10 MG, DAILY
     Route: 048
     Dates: start: 20110722, end: 20110827
  3. AFINITOR [Suspect]
     Dosage: 10 MG, DAILY
     Route: 048
     Dates: start: 20110121, end: 20110624
  4. DEPAKENE [Concomitant]
     Indication: METASTATIC RENAL CELL CARCINOMA
     Dosage: 600 MG, UNK
     Route: 048
     Dates: start: 20100501
  5. AFINITOR [Suspect]
     Indication: METASTATIC RENAL CELL CARCINOMA
     Dosage: 10 MG, DAILY
     Route: 048
     Dates: start: 20100813, end: 20101104

REACTIONS (18)
  - PLEURAL EFFUSION [None]
  - BLOOD LACTATE DEHYDROGENASE INCREASED [None]
  - NEOPLASM MALIGNANT [None]
  - URTICARIA [None]
  - METASTASES TO LUNG [None]
  - DYSPNOEA [None]
  - BLOOD GLUCOSE INCREASED [None]
  - CHOLECYSTITIS INFECTIVE [None]
  - METASTASES TO CENTRAL NERVOUS SYSTEM [None]
  - CARDIAC FAILURE [None]
  - ASPARTATE AMINOTRANSFERASE INCREASED [None]
  - BLOOD ALKALINE PHOSPHATASE INCREASED [None]
  - HERPES ZOSTER [None]
  - NEOPLASM PROGRESSION [None]
  - GAMMA-GLUTAMYLTRANSFERASE INCREASED [None]
  - HYPERTENSION [None]
  - ALANINE AMINOTRANSFERASE INCREASED [None]
  - BLOOD BILIRUBIN INCREASED [None]
